FAERS Safety Report 7090590-5 (Version None)
Quarter: 2010Q4

REPORT INFORMATION
  Report Type: 
  Country: None (occurrence: None)
  Receive Date: 20101109
  Receipt Date: 20080808
  Transmission Date: 20110411
  Serious: No
  Sender: FDA-Public Use
  Company Number: US-KINGPHARMUSA00001-K200800955

PATIENT
  Sex: Female

DRUGS (1)
  1. EPIPEN [Suspect]
     Dosage: .3 MG, SINGLE
     Dates: start: 20080808, end: 20080808

REACTIONS (6)
  - ACCIDENTAL EXPOSURE [None]
  - INJECTION SITE COLDNESS [None]
  - INJECTION SITE HAEMORRHAGE [None]
  - INJECTION SITE PALLOR [None]
  - INJECTION SITE SWELLING [None]
  - PERIPHERAL COLDNESS [None]
